FAERS Safety Report 24789749 (Version 1)
Quarter: 2024Q4

REPORT INFORMATION
  Report Type: Spontaneous
  Country: US (occurrence: None)
  Receive Date: 20241230
  Receipt Date: 20241230
  Transmission Date: 20250115
  Serious: Yes (Hospitalization)
  Sender: Public
  Company Number: None

PATIENT
  Age: 7 Year
  Sex: Female

DRUGS (1)
  1. MIGLUSTAT [Suspect]
     Active Substance: MIGLUSTAT
     Indication: Niemann-Pick disease
     Dosage: OTHER QUANTITY : 200MG MORNING AND 100MG EVENING ;?FREQUENCY : DAILY;?
     Route: 048
     Dates: start: 202008

REACTIONS (2)
  - Weight increased [None]
  - Seizure [None]

NARRATIVE: CASE EVENT DATE: 20241211
